FAERS Safety Report 9871989 (Version 1)
Quarter: 2014Q1

REPORT INFORMATION
  Report Type: Spontaneous
  Country: FR (occurrence: FR)
  Receive Date: 20140205
  Receipt Date: 20140205
  Transmission Date: 20141002
  Serious: Yes (Other)
  Sender: FDA-Public Use
  Company Number: FR-PFIZER INC-2014030198

PATIENT
  Age: 78 Year
  Sex: Female

DRUGS (2)
  1. AMLOR [Suspect]
     Dosage: 5 MG, UNK
  2. TAHOR [Suspect]
     Dosage: 20 MG, UNK

REACTIONS (5)
  - Tooth abscess [Unknown]
  - Gait disturbance [Unknown]
  - Myalgia [Unknown]
  - Fatigue [Unknown]
  - Insomnia [Unknown]
